FAERS Safety Report 16135685 (Version 1)
Quarter: 2019Q1

REPORT INFORMATION
  Report Type: Spontaneous
  Country: US (occurrence: US)
  Receive Date: 20190329
  Receipt Date: 20190329
  Transmission Date: 20190418
  Serious: Yes (Other)
  Sender: FDA-Public Use
  Company Number: US-BAYER-2019-059573

PATIENT
  Age: 3 Year
  Sex: Female
  Weight: 34 kg

DRUGS (2)
  1. MIRALAX [Suspect]
     Active Substance: POLYETHYLENE GLYCOL 3350
     Indication: CONSTIPATION
     Dosage: 1 DF, QD
     Route: 048
     Dates: start: 2010
  2. MIRALAX [Suspect]
     Active Substance: POLYETHYLENE GLYCOL 3350
     Indication: CONSTIPATION
     Dosage: UNK, IRR
     Dates: start: 2010

REACTIONS (7)
  - Attention deficit/hyperactivity disorder [Unknown]
  - Nausea [Unknown]
  - Depression [Unknown]
  - Vomiting [Unknown]
  - Product use in unapproved indication [Unknown]
  - Suicidal ideation [Unknown]
  - Product prescribing issue [Unknown]

NARRATIVE: CASE EVENT DATE: 2010
